FAERS Safety Report 18721457 (Version 1)
Quarter: 2021Q1

REPORT INFORMATION
  Report Type: Spontaneous
  Country: US (occurrence: US)
  Receive Date: 20210110
  Receipt Date: 20210110
  Transmission Date: 20210419
  Serious: Yes (Hospitalization, Disabling, Other)
  Sender: FDA-Public Use
  Company Number: US-SA-2021SA003798

PATIENT
  Age: 57 Year
  Sex: Male

DRUGS (4)
  1. NOVOLOG [Suspect]
     Active Substance: INSULIN ASPART
     Dosage: UNK
     Dates: start: 20200101
  2. NOVOLOG [Suspect]
     Active Substance: INSULIN ASPART
     Dosage: UNK
     Dates: start: 20200101
  3. NOVOLIN 70/30 [Suspect]
     Active Substance: INSULIN HUMAN
     Dosage: UNK
     Dates: start: 20200801
  4. LANTUS [Suspect]
     Active Substance: INSULIN GLARGINE
     Dosage: UNK

REACTIONS (17)
  - Neoplasm malignant [Unknown]
  - Prostate infection [Unknown]
  - Hyperglycaemia [Not Recovered/Not Resolved]
  - Suspected product tampering [Unknown]
  - Disability [Unknown]
  - Blood glucose fluctuation [Recovered/Resolved]
  - Visual impairment [Unknown]
  - Product dose omission issue [Unknown]
  - Hypoaesthesia [Unknown]
  - Dyspnoea [Unknown]
  - Nerve injury [Unknown]
  - Migraine [Unknown]
  - Blood glucose increased [Recovered/Resolved]
  - Blood glucose decreased [Recovered/Resolved]
  - Craniocerebral injury [Unknown]
  - Hepatic infection [Unknown]
  - Confusional state [Unknown]

NARRATIVE: CASE EVENT DATE: 2020
